FAERS Safety Report 6322577-1 (Version None)
Quarter: 2009Q3

REPORT INFORMATION
  Report Type: 
  Country: None (occurrence: None)
  Receive Date: 20090824
  Receipt Date: 20090226
  Transmission Date: 20100115
  Serious: No
  Sender: FDA-Public Use
  Company Number: US-ABBOTT-09P-163-0560069-00

PATIENT
  Sex: Female
  Weight: 69.462 kg

DRUGS (7)
  1. NIASPAN [Suspect]
     Indication: BLOOD CHOLESTEROL INCREASED
     Route: 048
     Dates: start: 20081101, end: 20081201
  2. AMBIEN CR [Concomitant]
     Indication: INSOMNIA
     Route: 048
  3. CLARITHROMYCIN [Concomitant]
     Indication: PNEUMONITIS
     Route: 048
     Dates: start: 20090201
  4. CRESTOR [Concomitant]
     Indication: BLOOD CHOLESTEROL INCREASED
     Route: 048
     Dates: start: 20090115
  5. CALTRATE [Concomitant]
     Indication: MEDICAL DIET
     Dosage: UNKNOWN
     Route: 048
  6. FISH OIL [Concomitant]
     Indication: MEDICAL DIET
     Dosage: UNKNOWN
     Route: 048
  7. MULTI-VITAMIN [Concomitant]
     Indication: MEDICAL DIET
     Dosage: UNKNOWN
     Route: 048

REACTIONS (3)
  - BLOOD TRIGLYCERIDES INCREASED [None]
  - FLUSHING [None]
  - LOW DENSITY LIPOPROTEIN INCREASED [None]
